FAERS Safety Report 16144543 (Version 2)
Quarter: 2019Q2

REPORT INFORMATION
  Report Type: Report from Study
  Country: PE (occurrence: PE)
  Receive Date: 20190402
  Receipt Date: 20190416
  Transmission Date: 20190711
  Serious: Yes (Hospitalization)
  Sender: FDA-Public Use
  Company Number: PE-SA-2019SA088587

PATIENT
  Age: 71 Year
  Sex: Female

DRUGS (5)
  1. LEVOTHYROXINE. [Concomitant]
     Active Substance: LEVOTHYROXINE
     Indication: HYPOTHYROIDISM
     Dosage: 50 MG, QD
     Route: 048
     Dates: start: 201804
  2. LEFLUNOMIDE. [Suspect]
     Active Substance: LEFLUNOMIDE
     Indication: RHEUMATOID ARTHRITIS
     Dosage: 20 MG, QD
     Route: 048
     Dates: start: 201803
  3. CELECOXIB. [Concomitant]
     Active Substance: CELECOXIB
     Indication: ARTHRALGIA
     Dosage: UNK UNK, QD
     Route: 048
     Dates: start: 201903
  4. NAPROXEN. [Concomitant]
     Active Substance: NAPROXEN
     Indication: ARTHRALGIA
     Dosage: UNK UNK, QD
     Route: 048
     Dates: start: 2011
  5. ORPHENADRINE [Concomitant]
     Active Substance: ORPHENADRINE
     Indication: ARTHRALGIA
     Dosage: UNK UNK, UNK (CONDITIONAL)
     Route: 048

REACTIONS (4)
  - Anaemia [Recovered/Resolved]
  - Urinary tract infection bacterial [Recovered/Resolved]
  - Loss of consciousness [Recovered/Resolved]
  - Pyrexia [Recovered/Resolved]

NARRATIVE: CASE EVENT DATE: 20180601
